FAERS Safety Report 9634095 (Version 3)
Quarter: 2013Q4

REPORT INFORMATION
  Report Type: Spontaneous
  Country: BR (occurrence: BR)
  Receive Date: 20131021
  Receipt Date: 20131105
  Transmission Date: 20140711
  Serious: Yes (Death, Hospitalization)
  Sender: FDA-Public Use
  Company Number: BR-B.I. PHARMACEUTICALS,INC./RIDGEFIELD-2013-BI-33441BR

PATIENT
  Age: 7 Decade
  Sex: Female

DRUGS (8)
  1. PRADAXA [Suspect]
     Indication: CEREBROVASCULAR ACCIDENT PROPHYLAXIS
     Dosage: 300 MG
     Route: 048
  2. PRADAXA [Suspect]
     Indication: ATRIAL FIBRILLATION
     Dosage: 75 MG
     Route: 048
  3. PRADAXA [Suspect]
     Indication: WOLFF-PARKINSON-WHITE SYNDROME
  4. PRADAXA [Suspect]
     Indication: INTRACARDIAC THROMBUS
  5. AMIODARONA [Concomitant]
     Indication: ARRHYTHMIA
  6. CLEXANE SC [Concomitant]
     Indication: INTRACARDIAC THROMBUS
  7. VITAMIN K [Concomitant]
     Indication: INTRACARDIAC THROMBUS
  8. MAREVAN [Concomitant]
     Indication: THROMBOSIS

REACTIONS (6)
  - Haemolytic transfusion reaction [Fatal]
  - Puncture site haemorrhage [Recovered/Resolved]
  - Arrhythmia [Recovered/Resolved]
  - Haematoma [Recovered/Resolved]
  - Anaemia [Unknown]
  - Off label use [Recovered/Resolved]
